FAERS Safety Report 4964877-3 (Version None)
Quarter: 2006Q2

REPORT INFORMATION
  Report Type: 
  Country: None (occurrence: None)
  Receive Date: 20060403
  Receipt Date: 20060320
  Transmission Date: 20061013
  Serious: Yes (Life-Threatening, Hospitalization)
  Sender: FDA-Public Use
  Company Number: HQWYE411020MAR06

PATIENT
  Age: 11 Year
  Sex: Female

DRUGS (1)
  1. ADVIL [Suspect]
     Indication: PYREXIA
     Dosage: ORAL
     Route: 048
     Dates: start: 20060221, end: 20060227

REACTIONS (10)
  - ACUTE RESPIRATORY DISTRESS SYNDROME [None]
  - CARDIAC DISORDER [None]
  - CARDIOMYOPATHY [None]
  - CYTOLYTIC HEPATITIS [None]
  - ELECTROCARDIOGRAM ST SEGMENT DEPRESSION [None]
  - INFECTION IN AN IMMUNOCOMPROMISED HOST [None]
  - PNEUMONIA STREPTOCOCCAL [None]
  - RESPIRATORY DISTRESS [None]
  - TRANSAMINASES INCREASED [None]
  - TROPONIN INCREASED [None]
